FAERS Safety Report 12779897 (Version 6)
Quarter: 2018Q1

REPORT INFORMATION
  Report Type: Spontaneous
  Country: US (occurrence: US)
  Receive Date: 20160926
  Receipt Date: 20180213
  Transmission Date: 20180508
  Serious: Yes (Other)
  Sender: FDA-Public Use
  Company Number: US-PFIZER INC-2016447809

PATIENT
  Age: 50 Year
  Sex: Female

DRUGS (1)
  1. XELJANZ XR [Suspect]
     Active Substance: TOFACITINIB CITRATE
     Dosage: 11 MG, DAILY
     Dates: start: 201610

REACTIONS (7)
  - Chest pain [Unknown]
  - Hepatic pain [Unknown]
  - Abdominal pain [Unknown]
  - Dyspnoea [Unknown]
  - Influenza [Unknown]
  - Hepatic enzyme increased [Unknown]
  - Rash erythematous [Unknown]

NARRATIVE: CASE EVENT DATE: 201710
